FAERS Safety Report 16156055 (Version 3)
Quarter: 2019Q4

REPORT INFORMATION
  Report Type: Spontaneous
  Country: IT (occurrence: IT)
  Receive Date: 20190404
  Receipt Date: 20191107
  Transmission Date: 20200122
  Serious: No
  Sender: FDA-Public Use
  Company Number: IT-LUPIN PHARMACEUTICALS INC.-2019-01752

PATIENT
  Sex: Female

DRUGS (6)
  1. GABAPENTIN. [Suspect]
     Active Substance: GABAPENTIN
     Indication: BORDERLINE PERSONALITY DISORDER
     Dosage: UNK (60 MG IN MORNING AND 30 MG IN THE EVENING)
     Route: 065
  2. LORAZEPAM. [Suspect]
     Active Substance: LORAZEPAM
     Indication: BORDERLINE PERSONALITY DISORDER
     Dosage: UNK (20 GTT DROPS)
     Route: 065
  3. LORAZEPAM. [Suspect]
     Active Substance: LORAZEPAM
     Indication: BORDERLINE PERSONALITY DISORDER
     Dosage: 1 MILLIGRAM, QD (TABLET)
     Route: 065
  4. PAROXETINE. [Suspect]
     Active Substance: PAROXETINE
     Indication: BORDERLINE PERSONALITY DISORDER
     Dosage: UNK (STARTED 4 YEARS AGO)
     Route: 048
  5. DULOXETINE. [Suspect]
     Active Substance: DULOXETINE
     Indication: BORDERLINE PERSONALITY DISORDER
     Dosage: UNK
     Route: 065
  6. TRITTICO [Suspect]
     Active Substance: TRAZODONE HYDROCHLORIDE
     Indication: BORDERLINE PERSONALITY DISORDER
     Dosage: UNK (STARTED 3 YEARS AGO)
     Route: 048

REACTIONS (2)
  - Anorgasmia [Unknown]
  - Off label use [Unknown]
